FAERS Safety Report 4437685-X (Version None)
Quarter: 2004Q3

REPORT INFORMATION
  Report Type: 
  Country: None (occurrence: None)
  Receive Date: 20040831
  Receipt Date: 20040224
  Transmission Date: 20050211
  Serious: No
  Sender: FDA-Public Use
  Company Number: US-GLAXOSMITHKLINE-A0500564A

PATIENT
  Sex: Female

DRUGS (11)
  1. ZOVIRAX [Suspect]
     Route: 061
     Dates: start: 20040202
  2. TOPROL-XL [Concomitant]
  3. ZOCOR [Concomitant]
  4. COUMADIN [Concomitant]
  5. LANOXIN [Concomitant]
  6. HYDROCHLOROTHIAZIDE [Concomitant]
  7. NORVASC [Concomitant]
  8. TRAZODONE [Concomitant]
  9. POTASSIUM [Concomitant]
  10. ATACAND [Concomitant]
  11. LEVAQUIN [Concomitant]

REACTIONS (2)
  - DRUG INEFFECTIVE [None]
  - PHARMACEUTICAL PRODUCT COMPLAINT [None]
